FAERS Safety Report 15626542 (Version 1)
Quarter: 2018Q4

REPORT INFORMATION
  Report Type: Spontaneous
  Country: ES (occurrence: ES)
  Receive Date: 20181116
  Receipt Date: 20181116
  Transmission Date: 20190205
  Serious: Yes (Other)
  Sender: FDA-Public Use
  Company Number: ES-TEVA-2018-ES-975410

PATIENT
  Age: 73 Year
  Sex: Male

DRUGS (3)
  1. IBUPROFENO (1769A) [Suspect]
     Active Substance: IBUPROFEN
     Indication: PAIN
     Dosage: 600 MILLIGRAM DAILY;
     Route: 048
     Dates: start: 20180907, end: 20180907
  2. ZALDIAR 37,5 MG/325 MG COMPRIMIDOS RECUBIERTOS CON PELICULA , 60 COMPR [Concomitant]
     Route: 048
  3. METAMIZOL (111A) [Concomitant]
     Active Substance: METAMIZOL SODIUM
     Route: 048

REACTIONS (2)
  - Arthritis [Recovered/Resolved]
  - Anaphylactoid reaction [Recovered/Resolved]

NARRATIVE: CASE EVENT DATE: 20180907
